FAERS Safety Report 6831217-4 (Version None)
Quarter: 2010Q3

REPORT INFORMATION
  Report Type: 
  Country: None (occurrence: None)
  Receive Date: 20100709
  Receipt Date: 20100709
  Transmission Date: 20110219
  Serious: No
  Sender: FDA-Public Use
  Company Number: None

PATIENT
  Sex: Male

DRUGS (1)
  1. INJ IVOMEC UNK [Suspect]
     Indication: DRUG ADMINISTRATION ERROR
     Dosage: 2 ML/UNK/INJ
     Route: 058
     Dates: start: 20100618

REACTIONS (2)
  - ACCIDENTAL EXPOSURE [None]
  - PUNCTURE SITE REACTION [None]
